FAERS Safety Report 18498586 (Version 2)
Quarter: 2021Q3

REPORT INFORMATION
  Report Type: Spontaneous
  Country: HR (occurrence: HR)
  Receive Date: 20201113
  Receipt Date: 20210806
  Transmission Date: 20211014
  Serious: Yes (Hospitalization, Disabling, Other)
  Sender: FDA-Public Use
  Company Number: HR-SA-2020SA316921

PATIENT
  Age: 33 Year
  Sex: Male

DRUGS (2)
  1. ZOLPIDEM TARTRATE. [Suspect]
     Active Substance: ZOLPIDEM TARTRATE
     Dosage: INJECTED FOUR DISSOLVED ZOLPIDEM PILLS, MEDICATION ERROR
     Route: 014
  2. METHADONE [Concomitant]
     Active Substance: METHADONE HYDROCHLORIDE
     Indication: ISCHAEMIC LIMB PAIN
     Dosage: 45 MG
     Route: 048

REACTIONS (19)
  - Muscle necrosis [Recovering/Resolving]
  - Muscle spasms [Recovered/Resolved]
  - Haemorrhage [Recovering/Resolving]
  - Disseminated intravascular coagulation [Recovering/Resolving]
  - Platelet count decreased [Recovered/Resolved]
  - Myoglobin blood increased [Recovered/Resolved]
  - Vascular occlusion [Recovering/Resolving]
  - Anxiety [Recovered/Resolved]
  - Peripheral ischaemia [Recovered/Resolved]
  - Peripheral coldness [Recovered/Resolved]
  - Blood fibrinogen decreased [Recovered/Resolved]
  - Ischaemic limb pain [Recovered/Resolved]
  - Pallor [Recovered/Resolved]
  - Pain [Recovered/Resolved]
  - Pain in extremity [Recovered/Resolved]
  - Agitation [Recovered/Resolved]
  - Accidental exposure to product [Unknown]
  - Polyuria [Recovered/Resolved]
  - Compartment syndrome [Recovered/Resolved]
